FAERS Safety Report 13864931 (Version 1)
Quarter: 2017Q3

REPORT INFORMATION
  Report Type: Spontaneous
  Country: CH (occurrence: CH)
  Receive Date: 20170814
  Receipt Date: 20170814
  Transmission Date: 20171127
  Serious: Yes (Hospitalization, Other)
  Sender: FDA-Public Use
  Company Number: CH-PFIZER INC-2017345543

PATIENT
  Age: 51 Year
  Sex: Female
  Weight: 60 kg

DRUGS (12)
  1. BACTRIM [Concomitant]
     Active Substance: SULFAMETHOXAZOLE\TRIMETHOPRIM
     Dosage: 1 DF= 800 MG SULFAMETHOXAZOL, 160 MG TRIMETHOPRIM, MONDAYS, WEDNESDAYS, FRIDAYS EACH 1
     Route: 048
  2. TOREM [Suspect]
     Active Substance: TORSEMIDE
     Dosage: 5 MG, 1X/DAY, (1-0-0-0)
     Route: 048
  3. BECOZYM [Concomitant]
     Active Substance: VITAMINS
     Dosage: 1 DF 3X/DAY (1-1-1-0)
     Route: 048
  4. ACIDUM FOLICUM STREULI [Concomitant]
     Active Substance: FOLIC ACID
     Dosage: 5MG 1X/DAY (1-0-0-0)
     Route: 048
  5. CALCIMAGON-D3 [Concomitant]
     Active Substance: CALCIUM\CHOLECALCIFEROL
     Dosage: 1 DF 1X/DAY, (1-0-0-0)
     Route: 048
  6. GENVOYA [Concomitant]
     Active Substance: COBICISTAT\ELVITEGRAVIR\EMTRICITABINE\TENOFOVIR ALAFENAMIDE FUMARATE
     Indication: HIV INFECTION CDC CATEGORY A
     Dosage: 1 DF /1X/DAY, (0-1-0-0)
     Route: 048
  7. SUPRADYN ENERGY [Concomitant]
     Active Substance: MINERALS\VITAMINS
     Dosage: 1 DF 1X/DAY, (1-0-0-0)
     Route: 048
     Dates: end: 201703
  8. ZOLOFT [Suspect]
     Active Substance: SERTRALINE HYDROCHLORIDE
     Dosage: 50 MG, 1X/DAY, (1-0-0-0)
     Route: 048
  9. SERESTA [Suspect]
     Active Substance: OXAZEPAM
     Dosage: 15 MG, 1X/DAY, (1-0-0-0) RESERVE, MAX. 6 / D
     Route: 048
  10. MST CONTINUS [Suspect]
     Active Substance: MORPHINE SULFATE
     Dosage: 440 MG, 2X/DAY, (440-0-440-0MG)
     Route: 048
  11. DUPHALAC [Suspect]
     Active Substance: LACTULOSE
     Dosage: 20 ML, 3X/DAY, (20-20-20-0ML)
     Route: 048
     Dates: end: 201703
  12. BENERVA [Concomitant]
     Active Substance: THIAMINE
     Dosage: 300MG 1X/DAY (1-0-0-0)
     Route: 048

REACTIONS (3)
  - Hypokalaemia [Recovered/Resolved]
  - Seizure [Recovered/Resolved]
  - Long QT syndrome [Recovered/Resolved]
